FAERS Safety Report 14552750 (Version 1)
Quarter: 2018Q1

REPORT INFORMATION
  Report Type: Spontaneous
  Country: US (occurrence: US)
  Receive Date: 20180220
  Receipt Date: 20180220
  Transmission Date: 20180509
  Serious: No
  Sender: FDA-Public Use
  Company Number: US-IPSEN BIOPHARMACEUTICALS, INC.-2017-12935

PATIENT
  Age: 82 Year
  Sex: Female

DRUGS (2)
  1. DYSPORT [Suspect]
     Active Substance: ABOBOTULINUMTOXINA
     Indication: HYPOTONIA
     Dosage: NOT REPORTED
     Route: 065
     Dates: start: 2017, end: 2017
  2. DYSPORT [Suspect]
     Active Substance: ABOBOTULINUMTOXINA
     Indication: OFF LABEL USE
     Dosage: NOT REPORTED
     Route: 065
     Dates: start: 2017, end: 2017

REACTIONS (2)
  - Off label use [Unknown]
  - Drug ineffective [Unknown]
